FAERS Safety Report 4666019-0 (Version None)
Quarter: 2005Q2

REPORT INFORMATION
  Report Type: 
  Country: None (occurrence: None)
  Receive Date: 20050517
  Receipt Date: 20050413
  Transmission Date: 20051028
  Serious: No
  Sender: FDA-Public Use
  Company Number: S05-USA-01914-01

PATIENT
  Age: 81 Year
  Sex: Female

DRUGS (6)
  1. NAMENDA [Suspect]
     Indication: DEMENTIA ALZHEIMER'S TYPE
     Dosage: 5 MG QD; PO
     Route: 048
     Dates: start: 20050406, end: 20050412
  2. NAMENDA [Suspect]
     Indication: PARKINSON'S DISEASE
     Dosage: 5 MG QD; PO
     Route: 048
     Dates: start: 20050406, end: 20050412
  3. NAMENDA [Suspect]
     Indication: DEMENTIA ALZHEIMER'S TYPE
     Dosage: 5 MG BID; PO
     Route: 048
     Dates: start: 20050413
  4. SINEMET [Concomitant]
  5. ZOLOFT [Concomitant]
  6. THYROID MEDICATION (NOS) [Concomitant]

REACTIONS (1)
  - DIZZINESS [None]
